FAERS Safety Report 25453613 (Version 3)
Quarter: 2025Q3

REPORT INFORMATION
  Report Type: Report from Study
  Country: CA (occurrence: CA)
  Receive Date: 20250619
  Receipt Date: 20250803
  Transmission Date: 20251021
  Serious: Yes (Hospitalization, Other)
  Sender: ALEXION PHARMACEUTICALS
  Company Number: CA-AstraZeneca-CH-00893006A

PATIENT
  Sex: Female

DRUGS (6)
  1. BENRALIZUMAB [Suspect]
     Active Substance: BENRALIZUMAB
     Indication: Asthma
  2. BENRALIZUMAB [Suspect]
     Active Substance: BENRALIZUMAB
  3. PREDNISONE [Concomitant]
     Active Substance: PREDNISONE
     Dosage: 50 MILLIGRAM, QD (NOW AT 20MG BUT STARTED AT 50MG ONCE EVERYDAY)
     Route: 065
     Dates: start: 20231205
  4. PREDNISONE [Concomitant]
     Active Substance: PREDNISONE
     Dosage: 20 MILLIGRAM, QD (NOW AT 20MG BUT STARTED AT 50MG ONCE EVERYDAY)
     Route: 065
  5. VENTOLIN [Concomitant]
     Active Substance: ALBUTEROL SULFATE
     Dosage: 100 MICROGRAM, QD (100 MCG EVERYDAY)
     Route: 065
     Dates: start: 20220101
  6. ZENHALE [Concomitant]
     Active Substance: FORMOTEROL FUMARATE\MOMETASONE FUROATE
     Route: 065

REACTIONS (2)
  - Cardiac failure [Unknown]
  - Pulmonary oedema [Unknown]
